FAERS Safety Report 6961580-5 (Version None)
Quarter: 2010Q3

REPORT INFORMATION
  Report Type: 
  Country: None (occurrence: None)
  Receive Date: 20100901
  Receipt Date: 20100825
  Transmission Date: 20110219
  Serious: Yes (Death)
  Sender: FDA-Public Use
  Company Number: US-GILEAD-2010-0031309

PATIENT
  Sex: Female
  Weight: 47.67 kg

DRUGS (10)
  1. LETAIRIS [Suspect]
     Indication: PULMONARY ARTERIAL HYPERTENSION
     Route: 048
     Dates: start: 20091102
  2. WARFARIN SODIUM [Concomitant]
  3. ASPIRIN [Concomitant]
  4. FUROSEMIDE [Concomitant]
  5. SPIRONOLACTONE [Concomitant]
  6. LISINOPRIL [Concomitant]
  7. DIGOXIN [Concomitant]
  8. GLIPIZIDE [Concomitant]
  9. METFORMIN [Concomitant]
  10. SIMVASTATIN [Concomitant]

REACTIONS (1)
  - DEATH [None]
